FAERS Safety Report 9493495 (Version 1)
Quarter: 2013Q3

REPORT INFORMATION
  Report Type: Spontaneous
  Country: DE (occurrence: DE)
  Receive Date: 20130902
  Receipt Date: 20130902
  Transmission Date: 20140515
  Serious: Yes (Other)
  Sender: FDA-Public Use
  Company Number: DE-PFIZER INC-2013247987

PATIENT
  Age: 46 Year
  Sex: Male

DRUGS (6)
  1. OXALIPLATIN [Suspect]
     Indication: BLADDER CANCER
     Dosage: UNK
     Dates: start: 201006
  2. IRINOTECAN HCL [Suspect]
     Indication: BLADDER CANCER
     Dosage: UNK
     Dates: start: 201006
  3. FLUOROURACIL [Suspect]
     Indication: BLADDER CANCER
     Dosage: UNK
     Dates: start: 201006
  4. LEUCOVORIN [Suspect]
     Indication: BLADDER CANCER
     Dosage: UNK
     Dates: start: 201006
  5. CETUXIMAB [Suspect]
     Indication: BLADDER CANCER
     Dosage: UNK
     Dates: start: 201006
  6. CETUXIMAB [Suspect]
     Dosage: BI-WEEKLY

REACTIONS (3)
  - Paraneoplastic pemphigus [Unknown]
  - Rash [Unknown]
  - Off label use [Unknown]
